FAERS Safety Report 5569834-4 (Version None)
Quarter: 2007Q4

REPORT INFORMATION
  Report Type: 
  Country: None (occurrence: None)
  Receive Date: 20071220
  Receipt Date: 20070604
  Transmission Date: 20080405
  Serious: No
  Sender: FDA-Public Use
  Company Number: US-ABBOTT-07P-163-0371432-00

PATIENT
  Age: 57 Year
  Sex: Female

DRUGS (1)
  1. OMNICEF [Suspect]
     Indication: SINUSITIS
     Dates: start: 20070202, end: 20070211

REACTIONS (5)
  - DECREASED APPETITE [None]
  - HYPOAESTHESIA [None]
  - MIDDLE INSOMNIA [None]
  - PAIN IN EXTREMITY [None]
  - PARAESTHESIA [None]
